FAERS Safety Report 5015829-9 (Version None)
Quarter: 2006Q2

REPORT INFORMATION
  Report Type: 
  Country: None (occurrence: None)
  Receive Date: 20060426
  Receipt Date: 20060113
  Transmission Date: 20061013
  Serious: No
  Sender: FDA-Public Use
  Company Number: US162437

PATIENT
  Sex: Male

DRUGS (1)
  1. SENSIPAR [Suspect]
     Dosage: 30 MG, 1 IN 1 DAYS
     Dates: start: 20051213, end: 20051215

REACTIONS (2)
  - DIARRHOEA [None]
  - STOMACH DISCOMFORT [None]
